FAERS Safety Report 24137415 (Version 1)
Quarter: 2024Q3

REPORT INFORMATION
  Report Type: Report from Study
  Country: US (occurrence: US)
  Receive Date: 20240725
  Receipt Date: 20240725
  Transmission Date: 20241016
  Serious: Yes (Life-Threatening, Hospitalization)
  Sender: GRIFOLS
  Company Number: US-IGSA-BIG0029121

PATIENT
  Age: 58 Year
  Sex: Male
  Weight: 97.052 kg

DRUGS (4)
  1. PROLASTIN-C LIQUID [Suspect]
     Active Substance: .ALPHA.1-PROTEINASE INHIBITOR HUMAN
     Indication: Alpha-1 antitrypsin deficiency
     Dosage: 60 UNKNOWN, Q.WK.
     Route: 042
     Dates: start: 20240509
  2. PROLASTIN-C LIQUID [Suspect]
     Active Substance: .ALPHA.1-PROTEINASE INHIBITOR HUMAN
     Dosage: 60 UNKNOWN, Q.WK.
     Route: 042
     Dates: start: 20220516
  3. PROLASTIN-C LIQUID [Suspect]
     Active Substance: .ALPHA.1-PROTEINASE INHIBITOR HUMAN
     Dosage: 60 UNKNOWN, SINGLE
     Route: 042
     Dates: start: 20240620, end: 20240620
  4. PROLASTIN-C LIQUID [Suspect]
     Active Substance: .ALPHA.1-PROTEINASE INHIBITOR HUMAN
     Dosage: 60 UNKNOWN, Q.WK.
     Route: 042
     Dates: start: 20240418

REACTIONS (3)
  - Pyrexia [Not Recovered/Not Resolved]
  - Heart rate increased [Recovering/Resolving]
  - Dyspnoea [Recovering/Resolving]

NARRATIVE: CASE EVENT DATE: 20240418
